FAERS Safety Report 16953263 (Version 1)
Quarter: 2019Q4

REPORT INFORMATION
  Report Type: Report from Study
  Country: FR (occurrence: FR)
  Receive Date: 20191023
  Receipt Date: 20191023
  Transmission Date: 20200122
  Serious: Yes (Other)
  Sender: FDA-Public Use
  Company Number: FR-BAUSCH-BL-2019-058332

PATIENT
  Sex: Male

DRUGS (3)
  1. NINLARO [Suspect]
     Active Substance: IXAZOMIB CITRATE
     Indication: PLASMA CELL MYELOMA
     Route: 065
  2. DEXAMETHASONE. [Suspect]
     Active Substance: DEXAMETHASONE
     Indication: PLASMA CELL MYELOMA
     Route: 065
  3. REVLIMID [Suspect]
     Active Substance: LENALIDOMIDE
     Indication: PLASMA CELL MYELOMA
     Route: 065
     Dates: end: 20180730

REACTIONS (7)
  - Confusional state [Unknown]
  - Acute kidney injury [Recovering/Resolving]
  - Bone pain [Recovering/Resolving]
  - Hypoxia [Recovering/Resolving]
  - Bronchitis viral [Recovered/Resolved]
  - Cytopenia [Unknown]
  - Renal impairment [Unknown]

NARRATIVE: CASE EVENT DATE: 20180402
